FAERS Safety Report 4440285-9 (Version None)
Quarter: 2004Q3

REPORT INFORMATION
  Report Type: 
  Country: None (occurrence: None)
  Receive Date: 20040831
  Receipt Date: 20040602
  Transmission Date: 20050211
  Serious: No
  Sender: FDA-Public Use
  Company Number: 702042

PATIENT
  Age: 53 Year
  Sex: Male
  Weight: 144.6975 kg

DRUGS (2)
  1. AMEVIVE [Suspect]
     Indication: PSORIASIS
     Dosage: 15 MG QW IM
     Route: 030
     Dates: start: 20031001
  2. AMEVIVE [Suspect]
     Indication: PSORIASIS
     Dosage: 15 MG QW IM
     Route: 030
     Dates: start: 20040706

REACTIONS (7)
  - DIARRHOEA [None]
  - DIZZINESS [None]
  - FEELING HOT [None]
  - LETHARGY [None]
  - NAUSEA [None]
  - PYREXIA [None]
  - SNEEZING [None]
